FAERS Safety Report 7577647-7 (Version None)
Quarter: 2011Q2

REPORT INFORMATION
  Report Type: 
  Country: None (occurrence: None)
  Receive Date: 20110628
  Receipt Date: 20110627
  Transmission Date: 20111010
  Serious: Yes (Other)
  Sender: FDA-Public Use
  Company Number: US-PFIZER INC-2011142951

PATIENT
  Sex: Female
  Weight: 79.4 kg

DRUGS (6)
  1. ZOLOFT [Concomitant]
     Indication: TREMOR
  2. LISINOPRIL [Concomitant]
     Indication: BLOOD PRESSURE ABNORMAL
     Dosage: 40 MG, 2X/DAY
     Route: 048
  3. ZOLOFT [Concomitant]
     Indication: NERVOUSNESS
     Dosage: 25 MG, DAILY
     Route: 048
  4. DILANTIN-125 [Suspect]
     Indication: LOSS OF CONSCIOUSNESS
     Dosage: 400 MG/DAY
     Route: 048
  5. ZOLOFT [Concomitant]
     Indication: STRESS
  6. LEVOTHYROXINE [Concomitant]
     Indication: THYROID DISORDER
     Dosage: 75 MG, DAILY
     Route: 048

REACTIONS (2)
  - CONVULSION [None]
  - LOSS OF CONSCIOUSNESS [None]
